FAERS Safety Report 6868354-4 (Version None)
Quarter: 2010Q3

REPORT INFORMATION
  Report Type: 
  Country: None (occurrence: None)
  Receive Date: 20100722
  Receipt Date: 20080605
  Transmission Date: 20110219
  Serious: No
  Sender: FDA-Public Use
  Company Number: US-PFIZER INC-2008044909

PATIENT
  Sex: Male
  Weight: 82.55 kg

DRUGS (6)
  1. CHANTIX [Suspect]
     Indication: SMOKING CESSATION THERAPY
     Route: 048
     Dates: start: 20080429
  2. XANAX [Concomitant]
  3. COREG [Concomitant]
     Indication: BLOOD PRESSURE ABNORMAL
  4. ACETYLSALICYLIC ACID [Concomitant]
  5. FISH OIL [Concomitant]
  6. AVANDARYL [Concomitant]
     Indication: DIABETES MELLITUS

REACTIONS (19)
  - ABDOMINAL DISTENSION [None]
  - ABNORMAL DREAMS [None]
  - AMNESIA [None]
  - BALANCE DISORDER [None]
  - BLOOD GLUCOSE INCREASED [None]
  - CONSTIPATION [None]
  - DEPRESSION [None]
  - DIZZINESS [None]
  - EXCORIATION [None]
  - FALL [None]
  - FATIGUE [None]
  - FLATULENCE [None]
  - INCREASED APPETITE [None]
  - INSOMNIA [None]
  - IRRITABILITY [None]
  - MALAISE [None]
  - MIDDLE INSOMNIA [None]
  - NAUSEA [None]
  - VERTIGO [None]
